FAERS Safety Report 6659148-3 (Version None)
Quarter: 2010Q1

REPORT INFORMATION
  Report Type: 
  Country: None (occurrence: None)
  Receive Date: 20100330
  Receipt Date: 20100315
  Transmission Date: 20100710
  Serious: No
  Sender: FDA-Public Use
  Company Number: US-BIOGENIDEC-2010BI009094

PATIENT
  Age: 69 Year
  Sex: Female

DRUGS (2)
  1. TYSABRI [Suspect]
     Indication: MULTIPLE SCLEROSIS
     Route: 042
     Dates: start: 20080910, end: 20091119
  2. TYSABRI [Suspect]
     Route: 042
     Dates: start: 20100222

REACTIONS (4)
  - APHASIA [None]
  - ASTHENIA [None]
  - PROCEDURAL PAIN [None]
  - PRURITUS [None]
